FAERS Safety Report 6600041-X (Version None)
Quarter: 2010Q1

REPORT INFORMATION
  Report Type: 
  Country: None (occurrence: None)
  Receive Date: 20100224
  Receipt Date: 20100212
  Transmission Date: 20100710
  Serious: Yes (Hospitalization)
  Sender: FDA-Public Use
  Company Number: US-PFIZER INC-2010020261

PATIENT

DRUGS (1)
  1. DEPO-MEDROL [Suspect]

REACTIONS (1)
  - CHEST PAIN [None]
